FAERS Safety Report 17481827 (Version 2)
Quarter: 2021Q1

REPORT INFORMATION
  Report Type: Spontaneous
  Country: US (occurrence: US)
  Receive Date: 20200302
  Receipt Date: 20210305
  Transmission Date: 20210419
  Serious: Yes (Other)
  Sender: FDA-Public Use
  Company Number: US-SA-2020SA047033

PATIENT
  Age: 54 Year
  Sex: Female

DRUGS (6)
  1. DUPIXENT [Suspect]
     Active Substance: DUPILUMAB
     Dosage: 300 MG, QOW
     Route: 065
     Dates: start: 20200219
  2. VALACICLOVIR [Suspect]
     Active Substance: VALACYCLOVIR HYDROCHLORIDE
     Indication: RASH
  3. HUMIRA [Suspect]
     Active Substance: ADALIMUMAB
     Indication: RASH
  4. DUPIXENT [Suspect]
     Active Substance: DUPILUMAB
     Indication: PSORIASIS
     Dosage: 300 MG, QOW
     Route: 065
     Dates: start: 20190717, end: 20200204
  5. DUPIXENT [Suspect]
     Active Substance: DUPILUMAB
     Dosage: 300 MG
     Dates: start: 2020
  6. STELARA [Suspect]
     Active Substance: USTEKINUMAB
     Indication: RASH

REACTIONS (8)
  - Cataract [Unknown]
  - Eye pain [Unknown]
  - Illness [Not Recovered/Not Resolved]
  - Rash [Not Recovered/Not Resolved]
  - Eye infection [Unknown]
  - Abdominal discomfort [Not Recovered/Not Resolved]
  - Pain in extremity [Not Recovered/Not Resolved]
  - Drug effective for unapproved indication [Unknown]
